FAERS Safety Report 7753665-0 (Version None)
Quarter: 2011Q3

REPORT INFORMATION
  Report Type: 
  Country: None (occurrence: None)
  Receive Date: 20110915
  Receipt Date: 20110915
  Transmission Date: 20111222
  Serious: Yes (Other)
  Sender: FDA-Public Use
  Company Number: None

PATIENT
  Age: 5 Year
  Sex: Female
  Weight: 16.782 kg

DRUGS (3)
  1. TRIAMCINOLONE ACETONIDE [Suspect]
     Indication: ADENOIDAL HYPERTROPHY
     Dosage: ONE SPRAY EACH NOSTRIL DAILY
     Route: 045
     Dates: start: 20110627, end: 20110822
  2. TRIAMCINOLONE ACETONIDE [Suspect]
     Indication: TONSILLAR HYPERTROPHY
     Dosage: ONE SPRAY EACH NOSTRIL DAILY
     Route: 045
     Dates: start: 20110627, end: 20110822
  3. TRIAMCINOLONE ACETONIDE [Suspect]
     Indication: DYSPNOEA
     Dosage: ONE SPRAY EACH NOSTRIL DAILY
     Route: 045
     Dates: start: 20110627, end: 20110822

REACTIONS (4)
  - FEAR [None]
  - FALL [None]
  - DISORIENTATION [None]
  - HALLUCINATION, VISUAL [None]
